FAERS Safety Report 9095229 (Version 1)
Quarter: 2013Q1

REPORT INFORMATION
  Report Type: Spontaneous
  Country: DE (occurrence: None)
  Receive Date: 20130122
  Receipt Date: 20130122
  Transmission Date: 20140127
  Serious: Yes (Other)
  Sender: FDA-Public Use
  Company Number: 2013ND000001

PATIENT
  Age: 39 Year
  Sex: Female

DRUGS (2)
  1. TOTECT [Suspect]
     Indication: EXTRAVASATION
     Dates: start: 201207
  2. AMPHOTERICIN B [Concomitant]

REACTIONS (1)
  - Granulomatous pneumonitis [None]
